FAERS Safety Report 19394391 (Version 1)
Quarter: 2021Q2

REPORT INFORMATION
  Report Type: Report from Study
  Country: ES (occurrence: ES)
  Receive Date: 20210609
  Receipt Date: 20210609
  Transmission Date: 20210717
  Serious: Yes (Other)
  Sender: FDA-Public Use
  Company Number: ES-GW PHARMA-202009ESGW03306

PATIENT

DRUGS (10)
  1. CLOBAZAM. [Concomitant]
     Active Substance: CLOBAZAM
     Indication: EPILEPSY
     Dosage: 1 MILLIGRAM/KILOGRAM, QD
     Route: 065
     Dates: start: 20140901, end: 20200131
  2. CLOBAZAM. [Concomitant]
     Active Substance: CLOBAZAM
     Dosage: 0.3 MILLIGRAM/KILOGRAM, QD
     Route: 065
     Dates: start: 20200601
  3. VALPROIC ACID. [Concomitant]
     Active Substance: VALPROIC ACID
     Indication: EPILEPSY
     Dosage: 40 MILLIGRAM/KILOGRAM, QD
     Route: 065
     Dates: start: 20190901, end: 20200531
  4. EPIDIOLEX [Suspect]
     Active Substance: CANNABIDIOL
     Dosage: 12.5 MILLIGRAM/KILOGRAM, QD
     Route: 048
     Dates: start: 20200201
  5. VALPROIC ACID. [Concomitant]
     Active Substance: VALPROIC ACID
     Dosage: 25 MILLIGRAM/KILOGRAM, QD
     Route: 065
     Dates: start: 20200601
  6. EPIDIOLEX [Suspect]
     Active Substance: CANNABIDIOL
     Dosage: 10 MILLIGRAM/KILOGRAM, QD (MAINTENANCE DOSE)
     Route: 048
     Dates: start: 2019, end: 2019
  7. EPIDIOLEX [Suspect]
     Active Substance: CANNABIDIOL
     Indication: LENNOX-GASTAUT SYNDROME
     Dosage: 2.5 MILLIGRAM/KILOGRAM, QD
     Route: 048
     Dates: start: 20190701, end: 2019
  8. EPIDIOLEX [Suspect]
     Active Substance: CANNABIDIOL
     Dosage: 5 MILLIGRAM/KILOGRAM, QD
     Route: 048
     Dates: start: 2019, end: 2019
  9. RUFINAMIDE [Concomitant]
     Active Substance: RUFINAMIDE
     Indication: EPILEPSY
     Dosage: 30 MILLIGRAM/KILOGRAM, QD
     Route: 065
  10. CLOBAZAM. [Concomitant]
     Active Substance: CLOBAZAM
     Dosage: 0.5 MILLIGRAM/KILOGRAM, QD
     Route: 065
     Dates: start: 20200201, end: 20200531

REACTIONS (14)
  - Hepatic function abnormal [Recovered/Resolved]
  - Therapeutic response unexpected [Unknown]
  - Alanine aminotransferase increased [Recovered/Resolved]
  - Somnolence [Recovered/Resolved]
  - Aspartate aminotransferase increased [Recovered/Resolved]
  - Gamma-glutamyltransferase increased [Recovered/Resolved]
  - Decreased appetite [Recovered/Resolved]
  - Hyperammonaemia [Recovered/Resolved]
  - Nausea [Recovered/Resolved]
  - Lethargy [Recovered/Resolved]
  - Vomiting [Recovered/Resolved]
  - Anticonvulsant drug level increased [Recovered/Resolved]
  - Fatigue [Recovered/Resolved]
  - Ataxia [Recovered/Resolved]

NARRATIVE: CASE EVENT DATE: 20190901
